FAERS Safety Report 4531606-7 (Version None)
Quarter: 2004Q4

REPORT INFORMATION
  Report Type: 
  Country: None (occurrence: None)
  Receive Date: 20041220
  Receipt Date: 20041207
  Transmission Date: 20050328
  Serious: Yes (Hospitalization)
  Sender: FDA-Public Use
  Company Number: FR-AMGEN-UK102170

PATIENT
  Sex: Female
  Weight: 56.6 kg

DRUGS (9)
  1. ARANESP [Suspect]
     Indication: RENAL FAILURE CHRONIC
     Route: 058
     Dates: start: 20030601
  2. ALLOPURINOL [Suspect]
     Route: 048
     Dates: start: 20030701
  3. MYTELASE [Concomitant]
     Route: 048
     Dates: start: 19900101
  4. BISOPROLOL FUMARATE [Concomitant]
     Route: 048
     Dates: start: 20041201, end: 20041203
  5. CALCITRIOL [Concomitant]
     Route: 048
     Dates: start: 20030601
  6. LERCANIDIPINE HYDROCHLORIDE [Concomitant]
     Route: 048
     Dates: start: 20031201
  7. PANTROPAZOLE [Concomitant]
     Route: 048
     Dates: start: 20041101
  8. AMBENONIUM [Concomitant]
     Route: 048
     Dates: start: 19900101
  9. AMILORDIE HYDROCHLORIDE [Concomitant]
     Route: 048
     Dates: start: 20030601

REACTIONS (4)
  - ANAEMIA [None]
  - BONE MARROW DISORDER [None]
  - LEUKOPENIA [None]
  - THROMBOCYTOPENIA [None]
